FAERS Safety Report 6265430-4 (Version None)
Quarter: 2009Q3

REPORT INFORMATION
  Report Type: 
  Country: None (occurrence: None)
  Receive Date: 20090713
  Receipt Date: 20090701
  Transmission Date: 20100115
  Serious: Yes (Other)
  Sender: FDA-Public Use
  Company Number: ES-BAYER-200924874GPV

PATIENT
  Age: 69 Year
  Sex: Female

DRUGS (6)
  1. NIFEDIPINE [Suspect]
     Indication: HYPERTENSIVE CRISIS
     Route: 065
  2. NIFEDIPINE [Suspect]
     Dosage: RESCUE DOSE
     Route: 065
  3. PIPERACILLIN SODIUM AND TAZOBACTAM SODIUM [Concomitant]
     Indication: PANCREATITIS ACUTE
  4. DOXAZOSIN MESYLATE [Concomitant]
     Indication: PANCREATITIS ACUTE
  5. IRBESARTAN [Concomitant]
     Indication: PANCREATITIS ACUTE
  6. HEPARIN [Concomitant]
     Indication: PANCREATITIS ACUTE

REACTIONS (5)
  - ACUTE GENERALISED EXANTHEMATOUS PUSTULOSIS [None]
  - EOSINOPHILIA [None]
  - NEUTROPHILIA [None]
  - PYREXIA [None]
  - RASH PRURITIC [None]
